FAERS Safety Report 6771290-5 (Version None)
Quarter: 2010Q2

REPORT INFORMATION
  Report Type: 
  Country: None (occurrence: None)
  Receive Date: 20100616
  Receipt Date: 20100604
  Transmission Date: 20101027
  Serious: Yes (Other)
  Sender: FDA-Public Use
  Company Number: US-ASTRAZENECA-2010SE27679

PATIENT
  Sex: Male
  Weight: 123.8 kg

DRUGS (2)
  1. SEROQUEL [Suspect]
     Route: 048
     Dates: start: 20010221
  2. SERZONE [Concomitant]
     Route: 048

REACTIONS (11)
  - DIABETIC GASTROPARESIS [None]
  - DIABETIC NEUROPATHY [None]
  - DIARRHOEA [None]
  - FOOT DEFORMITY [None]
  - HYPERTENSION [None]
  - METABOLIC SYNDROME [None]
  - METATARSALGIA [None]
  - OBESITY [None]
  - SCHIZOPHRENIA, PARANOID TYPE [None]
  - TYPE 1 DIABETES MELLITUS [None]
  - TYPE 2 DIABETES MELLITUS [None]
